FAERS Safety Report 11029309 (Version 1)
Quarter: 2015Q2

REPORT INFORMATION
  Report Type: Spontaneous
  Country: US (occurrence: US)
  Receive Date: 20150415
  Receipt Date: 20150415
  Transmission Date: 20150821
  Serious: Yes (Other)
  Sender: FDA-Public Use
  Company Number: US-AMGEN-USASP2015035073

PATIENT
  Age: 58 Year
  Sex: Female

DRUGS (1)
  1. PROLIA [Suspect]
     Active Substance: DENOSUMAB
     Indication: PRODUCT USED FOR UNKNOWN INDICATION
     Dosage: UNK, UNK
     Route: 065
     Dates: start: 20140917

REACTIONS (6)
  - Feeling abnormal [Unknown]
  - Bone disorder [Unknown]
  - Breast cancer [Unknown]
  - Balance disorder [Unknown]
  - Pain [Not Recovered/Not Resolved]
  - Ear pain [Not Recovered/Not Resolved]
